FAERS Safety Report 18945206 (Version 1)
Quarter: 2021Q1

REPORT INFORMATION
  Report Type: Spontaneous
  Country: US (occurrence: US)
  Receive Date: 20210226
  Receipt Date: 20210226
  Transmission Date: 20210420
  Serious: No
  Sender: FDA-Public Use
  Company Number: US-ASTRAZENECA-2021A073443

PATIENT
  Sex: Female
  Weight: 55.8 kg

DRUGS (6)
  1. SYMBICORT [Suspect]
     Active Substance: BUDESONIDE\FORMOTEROL FUMARATE DIHYDRATE
     Indication: ASTHMA
     Dosage: 2 INHALATIONS TWICE DAILY (AZ AG SYMBICORT)
     Route: 055
     Dates: start: 202101
  2. SYMBICORT [Suspect]
     Active Substance: BUDESONIDE\FORMOTEROL FUMARATE DIHYDRATE
     Indication: PULMONARY FIBROSIS
     Dosage: 2 INHALATIONS TWICE DAILY (AZ AG SYMBICORT)
     Route: 055
     Dates: start: 202101
  3. SYMBICORT [Suspect]
     Active Substance: BUDESONIDE\FORMOTEROL FUMARATE DIHYDRATE
     Indication: ASTHMA
     Dosage: 80 4.5 MCG 2 INHALATIONS TWO TIMES A DAY
     Route: 055
  4. SYMBICORT [Suspect]
     Active Substance: BUDESONIDE\FORMOTEROL FUMARATE DIHYDRATE
     Indication: PULMONARY FIBROSIS
     Dosage: 80 4.5 MCG 2 INHALATIONS TWO TIMES A DAY
     Route: 055
  5. SYMBICORT [Suspect]
     Active Substance: BUDESONIDE\FORMOTEROL FUMARATE DIHYDRATE
     Indication: PNEUMONIA
     Dosage: 80 4.5 MCG 2 INHALATIONS TWO TIMES A DAY
     Route: 055
  6. SYMBICORT [Suspect]
     Active Substance: BUDESONIDE\FORMOTEROL FUMARATE DIHYDRATE
     Indication: PNEUMONIA
     Dosage: 2 INHALATIONS TWICE DAILY (AZ AG SYMBICORT)
     Route: 055
     Dates: start: 202101

REACTIONS (2)
  - Cough [Recovering/Resolving]
  - Intentional product misuse [Unknown]
